FAERS Safety Report 15021106 (Version 9)
Quarter: 2018Q3

REPORT INFORMATION
  Report Type: Report from Study
  Country: DE (occurrence: DE)
  Receive Date: 20180618
  Receipt Date: 20180904
  Transmission Date: 20181010
  Serious: Yes (Hospitalization)
  Sender: FDA-Public Use
  Company Number: DE-CELGENEUS-DEU-20180604782

PATIENT
  Age: 38 Year
  Sex: Female

DRUGS (16)
  1. ABRAXANE [Suspect]
     Active Substance: PACLITAXEL
     Dosage: 236.25 MILLIGRAM/SQ. METER
     Route: 041
     Dates: end: 20180524
  2. DOXORUBICIN [Suspect]
     Active Substance: DOXORUBICIN
     Indication: TRIPLE NEGATIVE BREAST CANCER
     Dosage: 60 MILLIGRAM/SQ. METER
     Route: 041
     Dates: start: 20180604, end: 20180604
  3. HYDROCORTISONE. [Concomitant]
     Active Substance: HYDROCORTISONE
     Indication: DERMATITIS ALLERGIC
     Route: 061
     Dates: start: 20180308
  4. DOXORUBICIN [Suspect]
     Active Substance: DOXORUBICIN
     Dosage: 60 MILLIGRAM/SQ. METER
     Route: 041
     Dates: start: 20180702, end: 20180716
  5. PARACETAMOL [Concomitant]
     Active Substance: ACETAMINOPHEN
     Indication: PYREXIA
     Route: 065
     Dates: start: 20180528, end: 20180528
  6. PARACETAMOL [Concomitant]
     Active Substance: ACETAMINOPHEN
     Indication: HEADACHE
     Route: 065
     Dates: start: 20180512
  7. POSIFORMIN [Concomitant]
     Indication: HORDEOLUM
     Route: 065
     Dates: start: 20180517
  8. PARACETAMOL [Concomitant]
     Active Substance: ACETAMINOPHEN
     Indication: MYALGIA
     Route: 048
     Dates: start: 20180621, end: 20180627
  9. VOMEX [Concomitant]
     Active Substance: DIMENHYDRINATE
     Indication: NAUSEA
     Route: 065
     Dates: start: 20180604
  10. MESNA. [Concomitant]
     Active Substance: MESNA
     Indication: PRODUCT USED FOR UNKNOWN INDICATION
     Route: 065
     Dates: start: 20180604, end: 20180604
  11. ABRAXANE [Suspect]
     Active Substance: PACLITAXEL
     Indication: TRIPLE NEGATIVE BREAST CANCER
     Dosage: 125 MILLIGRAM/SQ. METER
     Route: 041
     Dates: start: 20180301
  12. ATEZOLIZUMAB. [Suspect]
     Active Substance: ATEZOLIZUMAB
     Indication: TRIPLE NEGATIVE BREAST CANCER
     Dosage: 60 MILLIGRAM/SQ. METER
     Route: 041
     Dates: start: 20180301
  13. ATEZOLIZUMAB. [Suspect]
     Active Substance: ATEZOLIZUMAB
     Dosage: 60 MILLIGRAM/SQ. METER
     Route: 041
     Dates: start: 20180702, end: 20180716
  14. CYCLOPHOSPHAMIDE. [Suspect]
     Active Substance: CYCLOPHOSPHAMIDE
     Indication: TRIPLE NEGATIVE BREAST CANCER
     Dosage: 600 MILLIGRAM/SQ. METER
     Route: 041
     Dates: start: 20180604, end: 20180604
  15. CYCLOPHOSPHAMIDE. [Suspect]
     Active Substance: CYCLOPHOSPHAMIDE
     Dosage: 81 MILLIGRAM
     Route: 041
     Dates: start: 20180702, end: 20180716
  16. PALONOSETRON. [Concomitant]
     Active Substance: PALONOSETRON HYDROCHLORIDE
     Indication: PROPHYLAXIS OF NAUSEA AND VOMITING
     Route: 065
     Dates: start: 20180604, end: 20180604

REACTIONS (4)
  - Malaise [Recovered/Resolved]
  - Malaise [Recovered/Resolved]
  - Confusional state [Recovered/Resolved]
  - Infusion related reaction [Recovered/Resolved]

NARRATIVE: CASE EVENT DATE: 20180604
